FAERS Safety Report 6358931-1 (Version None)
Quarter: 2009Q3

REPORT INFORMATION
  Report Type: 
  Country: None (occurrence: None)
  Receive Date: 20090914
  Receipt Date: 20090904
  Transmission Date: 20100115
  Serious: Yes (Life-Threatening)
  Sender: FDA-Public Use
  Company Number: 2009EU003449

PATIENT
  Sex: Female

DRUGS (2)
  1. PROGRAF [Suspect]
     Indication: RENAL TRANSPLANT
     Dosage: 50 DF, /D, ORAL
     Route: 048
     Dates: start: 20090721, end: 20090721
  2. PRAZEPAM [Suspect]
     Dosage: 10 DF, /D, ORAL
     Route: 048
     Dates: start: 20090721, end: 20090721

REACTIONS (2)
  - INCORRECT DOSE ADMINISTERED [None]
  - MEDICATION ERROR [None]
